FAERS Safety Report 4886507-1 (Version None)
Quarter: 2006Q1

REPORT INFORMATION
  Report Type: 
  Country: None (occurrence: None)
  Receive Date: 20060120
  Receipt Date: 20051012
  Transmission Date: 20060701
  Serious: Yes (Hospitalization)
  Sender: FDA-Public Use
  Company Number: GBWYE140815NOV05

PATIENT
  Age: 59 Year
  Sex: Male

DRUGS (7)
  1. ENBREL [Suspect]
     Indication: RHEUMATOID ARTHRITIS
     Dates: start: 20041101, end: 20051001
  2. CODEINE PHOSPHATE/PARACETAMOL [Concomitant]
  3. PREDNISOLONE [Concomitant]
  4. DICLOFENAC [Concomitant]
  5. ASPIRIN [Concomitant]
  6. RABEPRAZOLE SODIUM [Concomitant]
  7. SIMVASTATIN [Concomitant]

REACTIONS (2)
  - EPILEPSY [None]
  - LOSS OF CONSCIOUSNESS [None]
